FAERS Safety Report 12647442 (Version 1)
Quarter: 2016Q3

REPORT INFORMATION
  Report Type: Report from Study
  Country: AR (occurrence: AR)
  Receive Date: 20160812
  Receipt Date: 20160812
  Transmission Date: 20161109
  Serious: Yes (Hospitalization, Other)
  Sender: FDA-Public Use
  Company Number: PHHY2016AR110125

PATIENT
  Sex: Male

DRUGS (1)
  1. DIOVAN [Suspect]
     Active Substance: VALSARTAN
     Indication: CARDIAC DISORDER
     Route: 065

REACTIONS (7)
  - Vein disorder [Recovering/Resolving]
  - Malaise [Recovering/Resolving]
  - Vein rupture [Recovering/Resolving]
  - Memory impairment [Recovering/Resolving]
  - Diabetes mellitus [Recovering/Resolving]
  - Drug interaction [Recovering/Resolving]
  - Product use issue [Unknown]

NARRATIVE: CASE EVENT DATE: 2008
